FAERS Safety Report 20414486 (Version 1)
Quarter: 2022Q1

REPORT INFORMATION
  Report Type: Report from Study
  Country: DE (occurrence: DE)
  Receive Date: 20220202
  Receipt Date: 20220202
  Transmission Date: 20220423
  Serious: Yes (Hospitalization, Other)
  Sender: FDA-Public Use
  Company Number: DE-JNJFOC-20211122896

PATIENT
  Age: 24 Year
  Sex: Female
  Weight: 57 kg

DRUGS (2)
  1. STELARA [Suspect]
     Active Substance: USTEKINUMAB
     Indication: Crohn^s disease
     Route: 058
     Dates: start: 2019, end: 2021
  2. ENTYVIO [Concomitant]
     Active Substance: VEDOLIZUMAB

REACTIONS (4)
  - Haemoglobin decreased [Unknown]
  - Crohn^s disease [Unknown]
  - Exposure during pregnancy [Recovered/Resolved]
  - Drug ineffective [Unknown]

NARRATIVE: CASE EVENT DATE: 20191101
